FAERS Safety Report 8184291-X (Version None)
Quarter: 2012Q1

REPORT INFORMATION
  Report Type: 
  Country: None (occurrence: None)
  Receive Date: 20120305
  Receipt Date: 20120223
  Transmission Date: 20120608
  Serious: Yes (Hospitalization, Other)
  Sender: FDA-Public Use
  Company Number: US-BRISTOL-MYERS SQUIBB COMPANY-16414765

PATIENT
  Age: 71 Year
  Sex: Male
  Weight: 76 kg

DRUGS (15)
  1. NAPROXEN (ALEVE) [Concomitant]
  2. XANAX [Concomitant]
  3. PROVENGE [Suspect]
     Indication: PROSTATE CANCER
     Dosage: THERAPY DATES:16DEC11,30DEC11,12FEB2012
     Route: 042
     Dates: start: 20111202
  4. LOVASTATIN [Concomitant]
  5. METFORMIN HCL [Concomitant]
  6. FINASTERIDE [Concomitant]
  7. ASPIRIN [Concomitant]
  8. DUTASTERIDE [Concomitant]
  9. COUMADIN [Suspect]
  10. AMLODIPINE [Concomitant]
  11. NITROGLYCERIN [Concomitant]
  12. ALPRAZOLAM [Concomitant]
  13. MORPHINE SULFATE [Suspect]
  14. NAPROXEN [Concomitant]
  15. BICALUTAMIDE [Concomitant]

REACTIONS (9)
  - FALL [None]
  - AGITATION [None]
  - COAGULOPATHY [None]
  - OBSTRUCTIVE UROPATHY [None]
  - DIZZINESS [None]
  - BALANCE DISORDER [None]
  - DELIRIUM [None]
  - PROSTATE CANCER [None]
  - RENAL FAILURE ACUTE [None]
